FAERS Safety Report 19123255 (Version 1)
Quarter: 2021Q2

REPORT INFORMATION
  Report Type: Report from Study
  Country: US (occurrence: US)
  Receive Date: 20210412
  Receipt Date: 20210412
  Transmission Date: 20210717
  Serious: Yes (Other)
  Sender: FDA-Public Use
  Company Number: US-BAYER-2021-117298

PATIENT
  Age: 49 Year
  Sex: Male

DRUGS (1)
  1. STIVARGA [Suspect]
     Active Substance: REGORAFENIB
     Indication: BRAIN NEOPLASM
     Dosage: 160 MG DAILY FOR 3 WEEKS ON AND ONE WEEK OFF
     Route: 048
     Dates: start: 20201224, end: 202101

REACTIONS (4)
  - Drug interaction [Unknown]
  - Product use in unapproved indication [None]
  - Off label use [None]
  - Cardiac disorder [Unknown]

NARRATIVE: CASE EVENT DATE: 20201224
